FAERS Safety Report 6651827-7 (Version None)
Quarter: 2010Q1

REPORT INFORMATION
  Report Type: 
  Country: None (occurrence: None)
  Receive Date: 20100325
  Receipt Date: 20100325
  Transmission Date: 20100710
  Serious: No
  Sender: FDA-Public Use
  Company Number: US-B.I. PHARMACEUTICALS,INC./RIDGEFIELD-2010-BP-00530BP

PATIENT
  Sex: Male

DRUGS (4)
  1. FLOMAX [Suspect]
     Indication: BENIGN PROSTATIC HYPERPLASIA
     Dosage: 0.4 MG
     Route: 048
     Dates: start: 20091001, end: 20100115
  2. FLOMAX [Suspect]
     Dosage: 0.4 MG
     Route: 048
     Dates: start: 20100101, end: 20100301
  3. KEPPRA [Concomitant]
     Indication: CONVULSION
  4. NEXIUM [Concomitant]
     Indication: DUODENAL ULCER

REACTIONS (3)
  - INCONTINENCE [None]
  - URINARY INCONTINENCE [None]
  - URINE OUTPUT INCREASED [None]
